FAERS Safety Report 9630703 (Version 1)
Quarter: 2013Q4

REPORT INFORMATION
  Report Type: Spontaneous
  Country: US (occurrence: None)
  Receive Date: 20131016
  Receipt Date: 20131016
  Transmission Date: 20140711
  Serious: Yes (Other)
  Sender: FDA-Public Use
  Company Number: 2013SA100525

PATIENT
  Sex: Male

DRUGS (1)
  1. ICY HOT [Suspect]

REACTIONS (4)
  - Thermal burn [None]
  - Erythema [None]
  - Mobility decreased [None]
  - Pruritus [None]
